FAERS Safety Report 10014007 (Version 2)
Quarter: 2014Q1

REPORT INFORMATION
  Report Type: Report from Study
  Country: CA (occurrence: CA)
  Receive Date: 20140317
  Receipt Date: 20140317
  Transmission Date: 20141002
  Serious: Yes (Death, Hospitalization)
  Sender: FDA-Public Use
  Company Number: CA-JNJFOC-20140111340

PATIENT
  Age: 80 Year
  Sex: Male

DRUGS (1)
  1. ZYTIGA [Suspect]
     Indication: PROSTATE CANCER METASTATIC
     Route: 048
     Dates: start: 20131230

REACTIONS (8)
  - Death [Fatal]
  - Urinary tract infection [Unknown]
  - Pulmonary oedema [Unknown]
  - Hypersensitivity [Unknown]
  - Respiratory distress [Unknown]
  - Abdominal pain [Unknown]
  - Prostatic specific antigen increased [Unknown]
  - Lymphocyte count decreased [Unknown]
